FAERS Safety Report 7960071-2 (Version None)
Quarter: 2011Q4

REPORT INFORMATION
  Report Type: 
  Country: None (occurrence: None)
  Receive Date: 20111206
  Receipt Date: 20111121
  Transmission Date: 20120403
  Serious: Yes (Other)
  Sender: FDA-Public Use
  Company Number: IR-WATSON-2011-20963

PATIENT
  Age: 32 Year
  Sex: Female

DRUGS (1)
  1. INFED [Suspect]
     Indication: MEDICATION ERROR
     Route: 030

REACTIONS (2)
  - LEUKOCYTOCLASTIC VASCULITIS [None]
  - MEDICATION ERROR [None]
